FAERS Safety Report 9723692 (Version 1)
Quarter: 2013Q4

REPORT INFORMATION
  Report Type: Spontaneous
  Country: CH (occurrence: CH)
  Receive Date: 20131202
  Receipt Date: 20131202
  Transmission Date: 20140711
  Serious: Yes (Other)
  Sender: FDA-Public Use
  Company Number: CH-GLAXOSMITHKLINE-B0949072A

PATIENT
  Age: 50 Year
  Sex: Female
  Weight: 63 kg

DRUGS (1)
  1. AVODART [Suspect]
     Indication: LICHEN PLANUS
     Dosage: .5MG PER DAY
     Route: 048
     Dates: start: 20130620, end: 20130626

REACTIONS (16)
  - Dry eye [Not Recovered/Not Resolved]
  - Lacrimal disorder [Recovered/Resolved]
  - Photophobia [Recovering/Resolving]
  - Glossitis [Recovering/Resolving]
  - Tongue exfoliation [Recovering/Resolving]
  - Dry mouth [Recovered/Resolved with Sequelae]
  - Chest pain [Recovered/Resolved]
  - Dysphagia [Recovered/Resolved]
  - Constipation [Recovering/Resolving]
  - Anxiety [Recovering/Resolving]
  - Depression [Recovering/Resolving]
  - Fatigue [Recovered/Resolved]
  - Dysphonia [Recovered/Resolved]
  - Alopecia [Not Recovered/Not Resolved]
  - Lymphopenia [Recovered/Resolved]
  - Off label use [Recovered/Resolved]
